FAERS Safety Report 12425851 (Version 1)
Quarter: 2016Q2

REPORT INFORMATION
  Report Type: Spontaneous
  Country: IL (occurrence: IL)
  Receive Date: 20160601
  Receipt Date: 20160601
  Transmission Date: 20160815
  Serious: No
  Sender: FDA-Public Use
  Company Number: IL-PROMETHEUS LABORATORIES-2015PL000280

PATIENT
  Sex: Male

DRUGS (1)
  1. PROLEUKIN [Suspect]
     Active Substance: ALDESLEUKIN
     Indication: PRODUCT USED FOR UNKNOWN INDICATION
     Dosage: UNK UNKNOWN, SEE NARRATIVE
     Route: 042

REACTIONS (2)
  - Coma [Unknown]
  - General physical health deterioration [Unknown]
